FAERS Safety Report 9734740 (Version 2)
Quarter: 2013Q4

REPORT INFORMATION
  Report Type: Spontaneous
  Country: JP (occurrence: JP)
  Receive Date: 20131206
  Receipt Date: 20131211
  Transmission Date: 20140711
  Serious: Yes (Other)
  Sender: FDA-Public Use
  Company Number: JP-JNJFOC-20131118263

PATIENT
  Age: 79 Year
  Sex: Male
  Weight: 39 kg

DRUGS (2)
  1. XARELTO [Suspect]
     Indication: CEREBROVASCULAR ACCIDENT PROPHYLAXIS
     Route: 048
     Dates: start: 20131025, end: 20131125
  2. XARELTO [Suspect]
     Indication: ATRIAL FIBRILLATION
     Route: 048
     Dates: start: 20131025, end: 20131125

REACTIONS (4)
  - Haemorrhage subcutaneous [Recovered/Resolved]
  - Renal impairment [Unknown]
  - Pneumonia [Unknown]
  - Mouth haemorrhage [Not Recovered/Not Resolved]
